FAERS Safety Report 26153293 (Version 1)
Quarter: 2025Q4

REPORT INFORMATION
  Report Type: Report from Study
  Country: CN (occurrence: CN)
  Receive Date: 20251214
  Receipt Date: 20251214
  Transmission Date: 20260119
  Serious: Yes (Death, Other)
  Sender: ABBVIE
  Company Number: CN-PFIZER INC-PV202500145175

PATIENT
  Age: 58 Year
  Sex: Male

DRUGS (1)
  1. EMBLAVEO [Suspect]
     Active Substance: AVIBACTAM\AZTREONAM
     Indication: Product used for unknown indication
     Dosage: 3 DF
     Route: 042
     Dates: start: 20251110

REACTIONS (5)
  - Pancreatic failure [Fatal]
  - Renal failure [Fatal]
  - Blood pressure decreased [Unknown]
  - Chemical burn [Fatal]
  - Apnoea [Unknown]
